FAERS Safety Report 26102674 (Version 1)
Quarter: 2025Q4

REPORT INFORMATION
  Report Type: Spontaneous
  Country: IN (occurrence: IN)
  Receive Date: 20251128
  Receipt Date: 20251128
  Transmission Date: 20260117
  Serious: Yes (Hospitalization)
  Sender: PFIZER
  Company Number: IN-PFIZER INC-202200799015

PATIENT
  Age: 85 Year
  Sex: Female

DRUGS (29)
  1. PALBOCICLIB [Suspect]
     Active Substance: PALBOCICLIB
     Indication: Hormone receptor positive breast cancer
     Dosage: 125 MG, 1X/DAY FOR 21/30 DAYS FOR 6 MONTHS
     Route: 048
     Dates: start: 20210820
  2. PALBOCICLIB [Suspect]
     Active Substance: PALBOCICLIB
     Dosage: 100 MG, CYCLIC, (ONCE DAILY FOR 21/30 DAYS FOR 6 MONTHS)
     Route: 048
  3. PALBOCICLIB [Suspect]
     Active Substance: PALBOCICLIB
     Dosage: 125 MG, CYCLIC, (ONCE DAILY FOR 21/30 DAYS FOR 6 MONTHS)
     Route: 048
  4. PALBOCICLIB [Suspect]
     Active Substance: PALBOCICLIB
     Dosage: 100 MG, CYCLIC (FOR 21/30 DAYS)
     Route: 048
  5. PALBOCICLIB [Suspect]
     Active Substance: PALBOCICLIB
     Dosage: 75 MG, CYCLIC (FOR 21/30 DAYS)
     Route: 048
  6. EXEMESTANE [Concomitant]
     Active Substance: EXEMESTANE
     Dosage: 25 MG, DAILY (AT MORNING)X6 MONTHS
  7. EXEMESTANE [Concomitant]
     Active Substance: EXEMESTANE
     Dosage: 25 MG, DAILY (AT MORNING)X3 MONTHS
  8. SHELCAL XT [Concomitant]
     Dosage: 500 MG (AT MORNING AND AT NIGHT)X 6 MONTHS
  9. SHELCAL XT [Concomitant]
     Dosage: 500 MG (AT MORNING AND AT NIGHT)X 3 MONTHS
  10. DOMPERIDONE\PANTOPRAZOLE SODIUM [Concomitant]
     Active Substance: DOMPERIDONE\PANTOPRAZOLE SODIUM
     Dosage: 40 MG (AT MORNING AND NIGHT)X 6 MONTHS
  11. DOMPERIDONE\PANTOPRAZOLE SODIUM [Concomitant]
     Active Substance: DOMPERIDONE\PANTOPRAZOLE SODIUM
     Dosage: 40 MG (AT MORNING AND AT NIGHT)X 3 MONTHS
  12. ASCORBIC ACID [Concomitant]
     Active Substance: ASCORBIC ACID
     Dosage: 500 MG (AT MORNING AND AT NIGHT)X 6 MONTHS
  13. ASCORBIC ACID [Concomitant]
     Active Substance: ASCORBIC ACID
     Dosage: 500 MG (AT MORNING AND AT NIGHT)X 3 MONTHS
  14. LIVOGEN [FERROUS FUMARATE;FOLIC ACID] [Concomitant]
     Dosage: 1 DF (AT MORNING)X 6 MONTHS
  15. LIVOGEN [FERROUS FUMARATE;FOLIC ACID] [Concomitant]
     Dosage: 1 DF (AT MORNING)X 3 MONTHS
  16. CLOPIDOGREL [Concomitant]
     Active Substance: CLOPIDOGREL BISULFATE
     Dosage: 75 MG (AT NOON)X 6 MONTHS
  17. CLOPIDOGREL [Concomitant]
     Active Substance: CLOPIDOGREL BISULFATE
     Dosage: 75 MG (AT NOON)X 3 MONTHS
  18. TAZLOC AM [Concomitant]
     Dosage: 1 DF (AT MORNING)X 6 MONTHS
  19. TAZLOC AM [Concomitant]
     Dosage: 1 DF (AT MORNING)X 3 MONTHS
  20. METFORMIN HYDROCHLORIDE [Concomitant]
     Active Substance: METFORMIN HYDROCHLORIDE
     Dosage: 500 MG (AT NOON)X 6 MONTHS
  21. METFORMIN HYDROCHLORIDE [Concomitant]
     Active Substance: METFORMIN HYDROCHLORIDE
     Dosage: 500 MG (AT NOON)X 3 MONTHS
  22. BECOSULES [ASCORBIC ACID;BIOTIN;CALCIUM PANTOTHENATE;CYANOCOBALAMIN;FO [Concomitant]
     Dosage: 1 DF (AT MORNING)X 6 MONTHS
  23. BECOSULES [ASCORBIC ACID;BIOTIN;CALCIUM PANTOTHENATE;CYANOCOBALAMIN;FO [Concomitant]
     Dosage: 1 DF (AT MORNING)X 3 MONTHS
  24. RESTYL [Concomitant]
     Dosage: 0.25 MG (AT NIGHT)X 6 MONTHS
  25. RESTYL [Concomitant]
     Dosage: 0.25 MG (AT NIGHT)X 3 MONTHS
  26. DUOLIN [IPRATROPIUM BROMIDE;SALBUTAMOL SULFATE] [Concomitant]
     Dosage: UNK, 2X/DAY (AT MORNING AND AT NIGHT)X 6 MONTHS
  27. DUOLIN [IPRATROPIUM BROMIDE;SALBUTAMOL SULFATE] [Concomitant]
     Dosage: UNK, 2X/DAY (AT MORNING AND AT NIGHT)X 3 MONTHS
  28. BUDEVENT F [Concomitant]
     Dosage: UNK, 2X/DAY (AT MORNING AND AT NIGHT)X 6 MONTHS
  29. BUDEVENT F [Concomitant]
     Dosage: UNK, 2X/DAY (AT MORNING AND AT NIGHT)X 3 MONTHS

REACTIONS (10)
  - Neutropenic sepsis [Unknown]
  - Pleural effusion [Unknown]
  - Pneumonia [Unknown]
  - Oral mucosal blistering [Unknown]
  - Haemoglobin decreased [Unknown]
  - White blood cell count decreased [Unknown]
  - Glycosylated haemoglobin decreased [Unknown]
  - Asthenia [Unknown]
  - Fall [Unknown]
  - Asthma [Unknown]

NARRATIVE: CASE EVENT DATE: 20240101
